FAERS Safety Report 25331481 (Version 2)
Quarter: 2025Q2

REPORT INFORMATION
  Report Type: Spontaneous
  Country: US (occurrence: US)
  Receive Date: 20250519
  Receipt Date: 20250522
  Transmission Date: 20250717
  Serious: Yes (Other)
  Sender: PFIZER
  Company Number: US-PFIZER INC-202500103609

PATIENT
  Age: 64 Year
  Sex: Female

DRUGS (3)
  1. PALBOCICLIB [Suspect]
     Active Substance: PALBOCICLIB
     Indication: Hormone receptor positive breast cancer
  2. PALBOCICLIB [Suspect]
     Active Substance: PALBOCICLIB
  3. LETROZOLE [Suspect]
     Active Substance: LETROZOLE

REACTIONS (3)
  - Metastases to liver [Unknown]
  - Metastases to bone [Unknown]
  - Neutrophil count decreased [Unknown]

NARRATIVE: CASE EVENT DATE: 20210101
